FAERS Safety Report 7721034-5 (Version None)
Quarter: 2011Q3

REPORT INFORMATION
  Report Type: 
  Country: None (occurrence: None)
  Receive Date: 20110830
  Receipt Date: 20110830
  Transmission Date: 20111222
  Serious: Yes (Other)
  Sender: FDA-Public Use
  Company Number: None

PATIENT
  Age: 54 Year
  Sex: Female
  Weight: 73.4827 kg

DRUGS (2)
  1. TRIFLURIDINE [Suspect]
     Indication: HERPES OPHTHALMIC
     Dosage: 1 DROP EVERY 2 HRS.  LESS THAN OR EQUAL TO 9/DAY 046
     Dates: start: 20110720, end: 20110720
  2. TRIFLURIDINE [Suspect]
     Indication: HERPES OPHTHALMIC
     Dosage: 1 DROP EVERY 2 HRS.  LESS THAN OR EQUAL TO 9/DAY 046
     Dates: start: 20110601, end: 20110609

REACTIONS (6)
  - VISION BLURRED [None]
  - CORNEAL OEDEMA [None]
  - KERATOPATHY [None]
  - PAIN [None]
  - PHOTOPHOBIA [None]
  - NEUROPATHY PERIPHERAL [None]
